FAERS Safety Report 13115363 (Version 3)
Quarter: 2017Q3

REPORT INFORMATION
  Report Type: Report from Study
  Country: None (occurrence: US)
  Receive Date: 20170113
  Receipt Date: 20170714
  Transmission Date: 20171127
  Serious: Yes (Hospitalization, Other)
  Sender: FDA-Public Use
  Company Number: US-ABBVIE-16K-163-1782986-00

PATIENT
  Age: 61 Year
  Sex: Female

DRUGS (3)
  1. FUROSEMIDE. [Concomitant]
     Active Substance: FUROSEMIDE
     Indication: PRODUCT USED FOR UNKNOWN INDICATION
  2. HUMIRA [Suspect]
     Active Substance: ADALIMUMAB
     Indication: RHEUMATOID ARTHRITIS
     Route: 058
  3. URACIL [Concomitant]
     Active Substance: URACIL
     Indication: PRODUCT USED FOR UNKNOWN INDICATION

REACTIONS (14)
  - Atrial fibrillation [Unknown]
  - Blood urine present [Recovered/Resolved]
  - Ear infection [Recovered/Resolved]
  - White blood cells urine positive [Recovered/Resolved]
  - Pancreatitis [Not Recovered/Not Resolved]
  - Cardiac failure [Unknown]
  - Fluid overload [Recovered/Resolved]
  - Dyspnoea [Not Recovered/Not Resolved]
  - Oxygen saturation decreased [Not Recovered/Not Resolved]
  - Cardiac failure congestive [Not Recovered/Not Resolved]
  - Cystitis [Recovered/Resolved]
  - Fungal infection [Not Recovered/Not Resolved]
  - Cystitis [Recovered/Resolved]
  - Chronic obstructive pulmonary disease [Unknown]

NARRATIVE: CASE EVENT DATE: 2013
